FAERS Safety Report 9184704 (Version 1)
Quarter: 2013Q1

REPORT INFORMATION
  Report Type: Spontaneous
  Country: US (occurrence: US)
  Receive Date: 20130324
  Receipt Date: 20130324
  Transmission Date: 20140127
  Serious: Yes (Hospitalization)
  Sender: FDA-Public Use
  Company Number: US-ACTELION-A-NJ2013-80890

PATIENT
  Age: 66 Year
  Sex: Female

DRUGS (5)
  1. VENTAVIS [Suspect]
     Indication: PULMONARY ARTERIAL HYPERTENSION
     Dosage: 2.5 MCG, Q4HRS
     Route: 055
     Dates: start: 20130312, end: 20130312
  2. VENTAVIS [Suspect]
     Dosage: EVERY 2-3 HOURS
     Route: 055
     Dates: start: 20130314
  3. AMIODARONE [Concomitant]
     Dosage: UNK
  4. CEFEPIME [Concomitant]
  5. FLUCONAZOLE [Concomitant]

REACTIONS (3)
  - Coronary artery bypass [Unknown]
  - Infection [Unknown]
  - Hypotension [Recovered/Resolved]
